FAERS Safety Report 8876117 (Version 4)
Quarter: 2012Q4

REPORT INFORMATION
  Report Type: 
  Country: IT (occurrence: IT)
  Receive Date: 20121023
  Receipt Date: 20121127
  Transmission Date: 20130627
  Serious: Yes (Hospitalization)
  Sender: FDA-Public Use
  Company Number: IT-ABBOTT-12P-083-0996167-00

PATIENT
  Age: 94 Year
  Sex: Female

DRUGS (7)
  1. KLACID [Suspect]
     Indication: RESPIRATORY TRACT INFECTION
     Route: 048
     Dates: start: 20120624
  2. EUGLUCON [Suspect]
     Indication: DIABETES MELLITUS
     Route: 048
     Dates: start: 20110101, end: 20120625
  3. METFORAL [Concomitant]
     Indication: DIABETES MELLITUS
     Route: 048
  4. LOPRESOR [Concomitant]
     Indication: HYPERTENSION
     Route: 048
  5. MINITRAN [Concomitant]
     Indication: MYOCARDIAL ISCHAEMIA
     Route: 062
  6. ENAPREN [Concomitant]
     Indication: HYPERTENSION
     Route: 048
  7. LASITONE [Concomitant]
     Indication: HYPERTENSION
     Route: 048

REACTIONS (4)
  - Asthenia [Recovered/Resolved]
  - Hyperhidrosis [Recovered/Resolved]
  - Hypoglycaemia [Recovered/Resolved]
  - Sopor [Recovered/Resolved]
